FAERS Safety Report 7338191-5 (Version None)
Quarter: 2011Q1

REPORT INFORMATION
  Report Type: 
  Country: None (occurrence: None)
  Receive Date: 20110308
  Receipt Date: 20110302
  Transmission Date: 20110831
  Serious: Yes (Other)
  Sender: FDA-Public Use
  Company Number: BR-ABBOTT-10P-020-0689466-00

PATIENT
  Sex: Female
  Weight: 54 kg

DRUGS (5)
  1. CODEINE W/PARACETAMOL [Concomitant]
     Indication: PAIN
  2. SULFASALAZINE [Concomitant]
     Indication: ANKYLOSING SPONDYLITIS
     Route: 048
  3. NORTRIPTYLINE [Concomitant]
     Indication: PAIN
  4. HUMIRA [Suspect]
     Indication: ANKYLOSING SPONDYLITIS
     Route: 058
     Dates: start: 20101122, end: 20101122
  5. BACLOFEN [Concomitant]
     Indication: MUSCLE RELAXANT THERAPY

REACTIONS (6)
  - SWELLING FACE [None]
  - RASH ERYTHEMATOUS [None]
  - PARAESTHESIA [None]
  - HYPERSENSITIVITY [None]
  - SKIN PLAQUE [None]
  - PRURITUS [None]
